FAERS Safety Report 17354401 (Version 1)
Quarter: 2020Q1

REPORT INFORMATION
  Report Type: Report from Study
  Country: CO (occurrence: CO)
  Receive Date: 20200131
  Receipt Date: 20200131
  Transmission Date: 20200409
  Serious: Yes (Hospitalization, Other)
  Sender: FDA-Public Use
  Company Number: CO-ROCHE-2239517

PATIENT
  Sex: Female

DRUGS (2)
  1. CAPECITABINE. [Suspect]
     Active Substance: CAPECITABINE
     Indication: PRODUCT USED FOR UNKNOWN INDICATION
     Route: 048
  2. TRASTUZUMAB. [Suspect]
     Active Substance: TRASTUZUMAB
     Indication: PRODUCT USED FOR UNKNOWN INDICATION
     Route: 065

REACTIONS (11)
  - Thirst [Unknown]
  - Malaise [Unknown]
  - Pleural effusion [Unknown]
  - Dyspnoea [Unknown]
  - Back pain [Unknown]
  - Pain [Recovering/Resolving]
  - Inappropriate schedule of product administration [Unknown]
  - Abdominal pain upper [Unknown]
  - Decreased appetite [Unknown]
  - Abdominal pain [Unknown]
  - Nausea [Unknown]
